APPROVED DRUG PRODUCT: GLIPIZIDE
Active Ingredient: GLIPIZIDE
Strength: 5MG
Dosage Form/Route: TABLET, EXTENDED RELEASE;ORAL
Application: A206928 | Product #002 | TE Code: AB
Applicant: AUROBINDO PHARMA LTD
Approved: May 12, 2017 | RLD: No | RS: No | Type: RX